FAERS Safety Report 11438239 (Version 1)
Quarter: 2015Q3

REPORT INFORMATION
  Report Type: Spontaneous
  Country: US (occurrence: None)
  Receive Date: 20150828
  Receipt Date: 20150828
  Transmission Date: 20151125
  Serious: Yes (Death, Other)
  Sender: FDA-Public Use
  Company Number: ADR-2015-01632

PATIENT
  Age: 32 Year
  Sex: Male

DRUGS (5)
  1. BUPIVACAINE [Suspect]
     Active Substance: BUPIVACAINE
     Indication: SPINAL CORD INJURY
     Dosage: 6.330 MG/DAY
  2. MORPHINE INTRATHECAL [Suspect]
     Active Substance: MORPHINE
     Dosage: 3.272 MG/DAY
  3. BUPIVACAINE [Suspect]
     Active Substance: BUPIVACAINE
     Indication: SPINAL CORD DISORDER
     Dosage: 6.330 MG/DAY
  4. BUPIVACAINE [Suspect]
     Active Substance: BUPIVACAINE
     Indication: MUSCLE SPASTICITY
     Dosage: 6.330 MG/DAY
  5. COMPOUNDED BACLOFEN [Suspect]
     Active Substance: BACLOFEN
     Dosage: 189.89 MCG/ML

REACTIONS (4)
  - Respiratory failure [None]
  - Paraplegia [None]
  - Pneumonia [None]
  - Injury [None]

NARRATIVE: CASE EVENT DATE: 20131103
